FAERS Safety Report 14434367 (Version 1)
Quarter: 2018Q1

REPORT INFORMATION
  Report Type: Spontaneous
  Country: US (occurrence: US)
  Receive Date: 20180124
  Receipt Date: 20180124
  Transmission Date: 20180509
  Serious: No
  Sender: FDA-Public Use
  Company Number: US-TEVA-2018-US-848358

PATIENT
  Sex: Female
  Weight: 86 kg

DRUGS (1)
  1. PARAGARD T 380A [Suspect]
     Active Substance: COPPER
     Indication: CONTRACEPTION
     Route: 065
     Dates: start: 201603

REACTIONS (2)
  - Vaginal discharge [Not Recovered/Not Resolved]
  - Headache [Not Recovered/Not Resolved]
